FAERS Safety Report 11024246 (Version 2)
Quarter: 2015Q2

REPORT INFORMATION
  Report Type: Spontaneous
  Country: CA (occurrence: CA)
  Receive Date: 20150414
  Receipt Date: 20150427
  Transmission Date: 20150821
  Serious: Yes (Other)
  Sender: FDA-Public Use
  Company Number: CA-ROCHE-1563301

PATIENT
  Sex: Male

DRUGS (8)
  1. XOLAIR [Suspect]
     Active Substance: OMALIZUMAB
     Indication: ASTHMA
     Route: 058
     Dates: start: 20140515
  2. CROMOLYN [Concomitant]
     Active Substance: CROMOLYN
  3. SYMBICORT [Concomitant]
     Active Substance: BUDESONIDE\FORMOTEROL FUMARATE DIHYDRATE
     Dosage: 200, TWO PUFFS
     Route: 065
  4. EPIPEN [Concomitant]
     Active Substance: EPINEPHRINE
  5. AERIUS (CANADA) [Concomitant]
  6. SINGULAIR [Concomitant]
     Active Substance: MONTELUKAST SODIUM
  7. ASMANEX [Concomitant]
     Active Substance: MOMETASONE FUROATE
  8. VENTOLIN [Concomitant]
     Active Substance: ALBUTEROL SULFATE

REACTIONS (14)
  - Dyspnoea [Unknown]
  - Forced expiratory volume decreased [Recovering/Resolving]
  - Secretion discharge [Not Recovered/Not Resolved]
  - Fall [Unknown]
  - Soft tissue injury [Unknown]
  - Obstructive airways disorder [Recovering/Resolving]
  - Chest discomfort [Unknown]
  - Cellulitis [Unknown]
  - Wound infection [Unknown]
  - Joint injury [Unknown]
  - Wheezing [Recovered/Resolved]
  - Asthma [Unknown]
  - Wound [Unknown]
  - Arthropod sting [Unknown]
